FAERS Safety Report 7986363-9 (Version None)
Quarter: 2011Q4

REPORT INFORMATION
  Report Type: 
  Country: None (occurrence: None)
  Receive Date: 20111007
  Receipt Date: 20110802
  Transmission Date: 20120403
  Serious: No
  Sender: FDA-Public Use
  Company Number: 2011HGS-002452

PATIENT
  Age: 43 Year
  Sex: Female
  Weight: 144.2439 kg

DRUGS (8)
  1. FOLIC ACID [Concomitant]
  2. NEXIUM [Concomitant]
  3. ALLEGRA (FEXOFENADINE HYDROCHLORIDE) (FEXOFENADINE HYDROCHLORIDE) [Concomitant]
  4. DOLGIC (AXOTAL /OLDFORM/) (CAFFEINE, BUTALBITAL, PARACETAMOL) [Concomitant]
  5. METHOTREXATE [Concomitant]
  6. TYLENOL 3 (PANADEINE CO) (CODEINE PHOSPHATE, PARACETAMOL) [Concomitant]
  7. ZOLOFT [Concomitant]
  8. BENLYSTA [Suspect]
     Indication: SYSTEMIC LUPUS ERYTHEMATOSUS
     Dosage: 1 IN 28 D, INTRAVENOUS DRIP
     Route: 041
     Dates: start: 20110801, end: 20110801

REACTIONS (1)
  - FEELING ABNORMAL [None]
